FAERS Safety Report 18609474 (Version 1)
Quarter: 2020Q4

REPORT INFORMATION
  Report Type: Spontaneous
  Country: US (occurrence: US)
  Receive Date: 20201214
  Receipt Date: 20201214
  Transmission Date: 20210114
  Serious: Yes (Death)
  Sender: FDA-Public Use
  Company Number: US-ROCHE-2728902

PATIENT
  Sex: Female

DRUGS (2)
  1. XELODA [Suspect]
     Active Substance: CAPECITABINE
     Indication: PRODUCT USED FOR UNKNOWN INDICATION
     Route: 065
  2. TUKYSA [Suspect]
     Active Substance: TUCATINIB
     Indication: BREAST CANCER FEMALE
     Route: 065

REACTIONS (7)
  - Fatigue [Unknown]
  - Dehydration [Unknown]
  - Oral pain [Unknown]
  - Death [Fatal]
  - Diarrhoea [Unknown]
  - Feeding disorder [Unknown]
  - Stomatitis [Unknown]
